FAERS Safety Report 8254480-4 (Version None)
Quarter: 2012Q2

REPORT INFORMATION
  Report Type: 
  Country: None (occurrence: None)
  Receive Date: 20120403
  Receipt Date: 20120326
  Transmission Date: 20120825
  Serious: Yes (Hospitalization)
  Sender: FDA-Public Use
  Company Number: US-BIOGENIDEC-2011BI030844

PATIENT
  Age: 68 Year
  Sex: Male

DRUGS (13)
  1. PERCOCET [Concomitant]
  2. OXYBUTYNIN [Concomitant]
     Route: 048
  3. PROVIGIL [Concomitant]
  4. TYSABRI [Suspect]
     Indication: MULTIPLE SCLEROSIS
     Route: 042
     Dates: start: 20090904
  5. MEDICATION (NOS) [Concomitant]
     Route: 048
  6. STEROID [Concomitant]
     Indication: BACK PAIN
     Route: 008
  7. METFORMIN HCL [Concomitant]
  8. CYMBALTA [Concomitant]
  9. MEDICATION (NOS) [Concomitant]
     Route: 048
  10. KLONOPIN [Concomitant]
     Indication: MUSCLE SPASMS
  11. FENTANYL [Concomitant]
     Indication: BACK PAIN
     Route: 037
  12. OXYCONTIN [Concomitant]
  13. PROPHYLAXIS ANTIBIOTICS [Concomitant]
     Indication: CATHETER PLACEMENT

REACTIONS (7)
  - NEPHROLITHIASIS [None]
  - MOTOR DYSFUNCTION [None]
  - UROSEPSIS [None]
  - DEVICE MALFUNCTION [None]
  - URINARY TRACT INFECTION [None]
  - FALL [None]
  - PNEUMONIA ASPIRATION [None]
